FAERS Safety Report 24963068 (Version 2)
Quarter: 2025Q3

REPORT INFORMATION
  Report Type: Spontaneous
  Country: EU (occurrence: EU)
  Receive Date: 20250213
  Receipt Date: 20250804
  Transmission Date: 20251020
  Serious: Yes (Other)
  Sender: ALEXION PHARMACEUTICALS
  Company Number: None

PATIENT
  Age: 59 Year
  Sex: Male

DRUGS (5)
  1. CALQUENCE [Suspect]
     Active Substance: ACALABRUTINIB
     Indication: B-cell small lymphocytic lymphoma
     Dosage: 100 MILLIGRAM, Q12H
     Dates: start: 20211018, end: 20230320
  2. IMBRUVICA [Suspect]
     Active Substance: IBRUTINIB
     Indication: B-cell small lymphocytic lymphoma
     Dosage: 3 TABLETS OF 140MG
     Dates: start: 20210115, end: 20210301
  3. IMBRUVICA [Suspect]
     Active Substance: IBRUTINIB
     Dosage: 3 TABLETS OF 140MG
     Dates: start: 20210601, end: 20210604
  4. IMBRUVICA [Suspect]
     Active Substance: IBRUTINIB
     Dosage: 3 TABLETS OF 140MG
     Dates: start: 20210511, end: 20210526
  5. IMBRUVICA [Suspect]
     Active Substance: IBRUTINIB
     Dosage: 3 TABLETS OF 140MG
     Dates: start: 20210301, end: 20210511

REACTIONS (1)
  - Cough [Recovered/Resolved]

NARRATIVE: CASE EVENT DATE: 20210401
